FAERS Safety Report 17799778 (Version 3)
Quarter: 2020Q2

REPORT INFORMATION
  Report Type: Spontaneous
  Country: LT (occurrence: LT)
  Receive Date: 20200518
  Receipt Date: 20200615
  Transmission Date: 20200714
  Serious: Yes (Other)
  Sender: FDA-Public Use
  Company Number: NVSC2020LT133202

PATIENT
  Age: 29 Year
  Sex: Female
  Weight: 55 kg

DRUGS (5)
  1. ASPIRIN. [Suspect]
     Active Substance: ASPIRIN
     Indication: PRE-ECLAMPSIA
     Dosage: 100 MG, QD
     Route: 065
  2. TRISEQUENS [Suspect]
     Active Substance: ESTRADIOL\NORETHINDRONE ACETATE
     Indication: PRODUCT USED FOR UNKNOWN INDICATION
     Dosage: UNK
     Route: 065
  3. METOPROLOL. [Suspect]
     Active Substance: METOPROLOL
     Indication: PRE-ECLAMPSIA
     Dosage: 12.5 MG, QD
     Route: 065
  4. FOLIC ACID. [Suspect]
     Active Substance: FOLIC ACID
     Indication: PRODUCT USED FOR UNKNOWN INDICATION
     Dosage: UNK
     Route: 065
  5. METOPROLOL. [Suspect]
     Active Substance: METOPROLOL
     Indication: EXTRASYSTOLES
     Dosage: 25 MG, BID
     Route: 065

REACTIONS (7)
  - Exposure during pregnancy [Unknown]
  - Palpitations [Unknown]
  - Dyspnoea [Unknown]
  - Maternal exposure during pregnancy [Unknown]
  - Premature delivery [Unknown]
  - Gestational diabetes [Unknown]
  - Aortic valve disease [Unknown]
